FAERS Safety Report 9100612 (Version 3)
Quarter: 2013Q2

REPORT INFORMATION
  Report Type: Report from Study
  Country: AU (occurrence: AU)
  Receive Date: 20130214
  Receipt Date: 20130416
  Transmission Date: 20140414
  Serious: Yes (Other)
  Sender: FDA-Public Use
  Company Number: PHHY2013AU014120

PATIENT
  Age: 29 Year
  Sex: Male

DRUGS (6)
  1. CLOZARIL (CLOZAPINE) [Suspect]
     Dosage: 200 MG
     Dates: start: 20130116
  2. CLOZARIL (CLOZAPINE) [Suspect]
     Dosage: 225MG, NOCTE (AT NIGHT)
     Dates: start: 20130124
  3. CLOZARIL (CLOZAPINE) [Suspect]
     Dosage: 200 MG,
     Dates: end: 20130212
  4. PERINDOPRIL [Concomitant]
     Dosage: 2.5 MG, DAILY
     Route: 048
     Dates: start: 20130219
  5. RISPERIDONE [Concomitant]
     Dosage: 2 MG, BID
     Route: 048
  6. METFORMIN [Concomitant]
     Dosage: 500 MG, TID
     Route: 048

REACTIONS (14)
  - Left ventricular dysfunction [Unknown]
  - Systolic dysfunction [Unknown]
  - Myocarditis [Recovering/Resolving]
  - Ejection fraction decreased [Unknown]
  - Troponin increased [Unknown]
  - Malaise [Unknown]
  - Chest pain [Unknown]
  - Pyrexia [Unknown]
  - Sinus tachycardia [Unknown]
  - Hypokinesia [Unknown]
  - Muscular weakness [Unknown]
  - Fatigue [Unknown]
  - Monocyte count decreased [Unknown]
  - No therapeutic response [Unknown]
